FAERS Safety Report 5541764-3 (Version None)
Quarter: 2007Q4

REPORT INFORMATION
  Report Type: 
  Country: None (occurrence: None)
  Receive Date: 20071210
  Receipt Date: 20071203
  Transmission Date: 20080405
  Serious: Yes (Other)
  Sender: FDA-Public Use
  Company Number: A0696995A

PATIENT
  Age: 85 Year
  Sex: Male

DRUGS (3)
  1. COREG [Suspect]
     Dosage: 6.25MG TWICE PER DAY
     Route: 048
  2. COREG CR [Suspect]
     Dosage: 20MG PER DAY
     Route: 048
  3. COZAAR [Concomitant]

REACTIONS (2)
  - ANEURYSM [None]
  - HYPOTENSION [None]
